FAERS Safety Report 8042921-7 (Version None)
Quarter: 2012Q1

REPORT INFORMATION
  Report Type: 
  Country: None (occurrence: None)
  Receive Date: 20120112
  Receipt Date: 20120110
  Transmission Date: 20120608
  Serious: Yes (Death, Hospitalization, Disabling, Other)
  Sender: FDA-Public Use
  Company Number: US-CELGENEUS-163-21880-10102828

PATIENT
  Sex: Female

DRUGS (18)
  1. REVLIMID [Suspect]
     Dosage: 10 MILLIGRAM
     Route: 048
     Dates: end: 20110401
  2. PRINIVIL [Concomitant]
     Dosage: 40 MILLIGRAM
     Route: 065
  3. ARMODAFINIL [Concomitant]
     Dosage: 200 MILLIGRAM
     Route: 065
  4. ZITHROMAX [Concomitant]
     Dosage: 250 MILLIGRAM
     Route: 065
  5. CEFEPIME [Concomitant]
     Route: 065
  6. CLARITIN [Concomitant]
     Dosage: 10 MILLIGRAM
     Route: 065
  7. REVLIMID [Suspect]
     Dosage: 25 MILLIGRAM
     Route: 048
     Dates: start: 20100901
  8. VELCADE [Suspect]
     Dosage: 1.7 MILLIGRAM
     Route: 041
     Dates: start: 20100820, end: 20100827
  9. VANCOMYCIN [Concomitant]
     Route: 065
  10. PEPCID [Concomitant]
     Dosage: 20 MILLIGRAM
     Route: 065
  11. FLOVENT [Concomitant]
     Dosage: 2 PUFFS
     Route: 065
  12. THERAPEUTIC VITAMINS [Concomitant]
     Route: 065
  13. DEXAMETHASONE TAB [Concomitant]
     Dosage: 20 MILLIGRAM
     Route: 065
     Dates: start: 20100818, end: 20100828
  14. ACYCLOVIR [Concomitant]
     Dosage: 400 MILLIGRAM
     Route: 065
     Dates: start: 20101021
  15. VENTOLIN [Concomitant]
     Dosage: 2 PUFFS
     Route: 065
  16. CIPROFLOXACIN [Concomitant]
     Dosage: 500 MILLIGRAM
     Route: 065
     Dates: end: 20101021
  17. ZOVIRAX [Concomitant]
     Dosage: 400 MILLIGRAM
     Route: 065
  18. COMPAZINE [Concomitant]
     Dosage: 10 MILLIGRAM
     Route: 065

REACTIONS (4)
  - MULTIPLE MYELOMA [None]
  - NEUROPATHY PERIPHERAL [None]
  - LUNG INFILTRATION [None]
  - RASH [None]
